FAERS Safety Report 7878017-4 (Version None)
Quarter: 2011Q4

REPORT INFORMATION
  Report Type: 
  Country: None (occurrence: None)
  Receive Date: 20111031
  Receipt Date: 20111021
  Transmission Date: 20120403
  Serious: No
  Sender: FDA-Public Use
  Company Number: US-B.I. PHARMACEUTICALS,INC./RIDGEFIELD-2011-BP-24757BP

PATIENT
  Sex: Female

DRUGS (8)
  1. AMBIEN [Concomitant]
     Indication: INSOMNIA
     Route: 048
  2. VITAMIN B COMPLEX CAP [Concomitant]
     Indication: SUPPLEMENTATION THERAPY
     Route: 048
  3. BROMELAIN [Concomitant]
     Indication: SUPPLEMENTATION THERAPY
     Route: 048
  4. FISH OIL [Concomitant]
     Indication: SUPPLEMENTATION THERAPY
     Route: 048
  5. VITAMIN D [Concomitant]
     Indication: SUPPLEMENTATION THERAPY
     Route: 048
  6. PRADAXA [Suspect]
     Indication: ATRIAL FIBRILLATION
     Dosage: 300 MG
     Route: 048
     Dates: start: 20110901
  7. CALCIUM [Concomitant]
     Indication: SUPPLEMENTATION THERAPY
     Route: 048
  8. WATER FACTORS [Concomitant]
     Indication: ABDOMINAL DISTENSION
     Route: 048

REACTIONS (6)
  - EYE SWELLING [None]
  - ECZEMA [None]
  - ERYTHEMA OF EYELID [None]
  - RASH [None]
  - DARK CIRCLES UNDER EYES [None]
  - EYELID EXFOLIATION [None]
